FAERS Safety Report 20704697 (Version 1)
Quarter: 2022Q2

REPORT INFORMATION
  Report Type: Spontaneous
  Country: US (occurrence: None)
  Receive Date: 20220412
  Receipt Date: 20220412
  Transmission Date: 20220721
  Serious: No
  Sender: FDA-Public Use
  Company Number: None

PATIENT
  Weight: 92.99 kg

DRUGS (1)
  1. RITUXAN [Suspect]
     Active Substance: RITUXIMAB

REACTIONS (5)
  - Allergic reaction to excipient [None]
  - Infusion related reaction [None]
  - Skin exfoliation [None]
  - Subcutaneous abscess [None]
  - Impaired healing [None]
